FAERS Safety Report 8275732-8 (Version None)
Quarter: 2012Q2

REPORT INFORMATION
  Report Type: 
  Country: None (occurrence: None)
  Receive Date: 20120410
  Receipt Date: 20120410
  Transmission Date: 20120825
  Serious: No
  Sender: FDA-Public Use
  Company Number: None

PATIENT

DRUGS (1)
  1. AMINOPHYLLINE 250MG/10ML HOSPIRA [Suspect]
     Indication: CARDIAC STRESS TEST
     Dosage: AMINOPHYLLINE 250MG/10ML ADM@STRESS TEST IV
     Route: 042

REACTIONS (2)
  - PRODUCT QUALITY ISSUE [None]
  - PARAESTHESIA [None]
